FAERS Safety Report 11088224 (Version 4)
Quarter: 2024Q1

REPORT INFORMATION
  Report Type: Spontaneous
  Country: BR (occurrence: BR)
  Receive Date: 20150504
  Receipt Date: 20240214
  Transmission Date: 20240410
  Serious: Yes (Life-Threatening, Hospitalization, Disabling, Other)
  Sender: FDA-Public Use
  Company Number: BR-PFIZER INC-2015150432

PATIENT
  Sex: Male
  Weight: 82 kg

DRUGS (19)
  1. GEODON [Suspect]
     Active Substance: ZIPRASIDONE HYDROCHLORIDE\ZIPRASIDONE MESYLATE
     Indication: Schizophrenia
     Dosage: UNK
     Route: 065
     Dates: start: 2009
  2. CLOZAPINE [Suspect]
     Active Substance: CLOZAPINE
     Indication: Schizophrenia
     Dosage: 100 MILLIGRAM
     Route: 048
     Dates: start: 2007
  3. CLOZAPINE [Suspect]
     Active Substance: CLOZAPINE
     Dosage: 700 MILLIGRAM, PM
     Route: 048
  4. CLOZAPINE [Suspect]
     Active Substance: CLOZAPINE
     Dosage: 900 MILLIGRAM, QD
     Route: 048
  5. CLOZAPINE [Suspect]
     Active Substance: CLOZAPINE
     Dosage: UNK, QD
     Route: 048
  6. CLOZAPINE [Suspect]
     Active Substance: CLOZAPINE
     Dosage: 900 MILLIGRAM, QD (2 TABLETS IN  THE MORNING AND 7 TABLETS AT NIGHT)
     Route: 048
     Dates: start: 2009
  7. LYRICA [Suspect]
     Active Substance: PREGABALIN
     Indication: Nausea
     Dosage: 75 MILLIGRAM, PRN
     Route: 048
  8. RISPERIDONE [Suspect]
     Active Substance: RISPERIDONE
     Indication: Schizophrenia
     Dosage: UNK
     Route: 065
     Dates: start: 2009
  9. SEROQUEL [Suspect]
     Active Substance: QUETIAPINE FUMARATE
     Indication: Schizophrenia
     Dosage: UNK
     Route: 065
     Dates: start: 2009
  10. ZYPREXA [Suspect]
     Active Substance: OLANZAPINE
     Indication: Schizophrenia
     Dosage: 5 MILLIGRAM, QD
     Route: 065
     Dates: start: 2009
  11. ABILIFY [Suspect]
     Active Substance: ARIPIPRAZOLE
     Indication: Schizophrenia
     Dosage: UNK
     Route: 065
     Dates: start: 2009
  12. LITHIUM CARBONATE [Suspect]
     Active Substance: LITHIUM CARBONATE
     Indication: Schizophrenia
     Dosage: UNK
     Route: 065
     Dates: start: 2009
  13. HALDOL [Suspect]
     Active Substance: HALOPERIDOL
     Indication: Schizophrenia
     Dosage: UNK
     Route: 065
     Dates: start: 2009
  14. TRILEPTAL [Suspect]
     Active Substance: OXCARBAZEPINE
     Indication: Schizophrenia
     Dosage: 300 MILLIGRAM, TID (3X/DAY)
     Route: 048
     Dates: start: 2009
  15. LIORESAL [Suspect]
     Active Substance: BACLOFEN
     Indication: Dystonia
     Dosage: 2 DOSAGE FORM, QD
     Route: 048
  16. NEXIUM [Concomitant]
     Active Substance: ESOMEPRAZOLE MAGNESIUM
     Indication: Abdominal discomfort
     Dosage: 40 MILLIGRAM, QD (AT NIGHT)
     Route: 048
     Dates: start: 2009
  17. DIAZEPAM [Concomitant]
     Active Substance: DIAZEPAM
     Indication: Agitation
     Dosage: 5 MILLIGRAM, BID (HALF TABLET TWICE A DAY)
     Route: 048
     Dates: start: 2009
  18. RISPERDAL [Concomitant]
     Active Substance: RISPERIDONE
     Indication: Schizophrenia
     Dosage: 3 MILLIGRAM, UNK
     Route: 065
  19. ESOMEPRAZOLE [Concomitant]
     Active Substance: ESOMEPRAZOLE
     Indication: Abdominal discomfort
     Dosage: 40 MILLIGRAM, QD
     Route: 065

REACTIONS (25)
  - Suicide attempt [Recovering/Resolving]
  - Road traffic accident [Recovered/Resolved]
  - Tooth fracture [Recovered/Resolved]
  - Dystonia [Not Recovered/Not Resolved]
  - Seizure [Recovered/Resolved]
  - Tardive dyskinesia [Recovering/Resolving]
  - Persecutory delusion [Recovering/Resolving]
  - Schizophrenia [Recovered/Resolved]
  - Neurodegenerative disorder [Not Recovered/Not Resolved]
  - Cognitive disorder [Not Recovered/Not Resolved]
  - Panic reaction [Recovering/Resolving]
  - Anxiety [Recovering/Resolving]
  - Constipation [Not Recovered/Not Resolved]
  - Delusional perception [Recovered/Resolved]
  - Malaise [Unknown]
  - Physical disability [Unknown]
  - Dyskinesia [Recovered/Resolved]
  - Nausea [Not Recovered/Not Resolved]
  - Circadian rhythm sleep disorder [Unknown]
  - Incorrect product administration duration [Not Recovered/Not Resolved]
  - Wrong schedule [Not Recovered/Not Resolved]
  - Off label use [Unknown]
  - Drug ineffective [Unknown]
  - Product availability issue [Unknown]
  - Product physical issue [Unknown]

NARRATIVE: CASE EVENT DATE: 20090101
